FAERS Safety Report 7392263-8 (Version None)
Quarter: 2011Q2

REPORT INFORMATION
  Report Type: 
  Country: None (occurrence: None)
  Receive Date: 20110404
  Receipt Date: 20110322
  Transmission Date: 20111010
  Serious: Yes (Other)
  Sender: FDA-Public Use
  Company Number: JP-MERCK-1102USA01929

PATIENT
  Age: 57 Year
  Sex: Female

DRUGS (2)
  1. SINEMET [Suspect]
     Indication: RESTLESS LEGS SYNDROME
     Dosage: 300MG, 300MG, 400MG
     Route: 048
  2. SINEMET [Suspect]
     Dosage: DIVIDED DOSE FREQUENCY UNKNOWN
     Route: 048

REACTIONS (4)
  - HYPOAESTHESIA [None]
  - OVERDOSE [None]
  - PAIN [None]
  - DYSKINESIA [None]
